FAERS Safety Report 21480161 (Version 1)
Quarter: 2022Q4

REPORT INFORMATION
  Report Type: Spontaneous
  Country: US (occurrence: US)
  Receive Date: 20221019
  Receipt Date: 20221019
  Transmission Date: 20230112
  Serious: Yes (Hospitalization)
  Sender: FDA-Public Use
  Company Number: US-MYLANLABS-2022M1115377

PATIENT
  Age: 67 Year
  Sex: Male

DRUGS (3)
  1. VANCOMYCIN [Suspect]
     Active Substance: VANCOMYCIN
     Indication: Gradenigo^s syndrome
     Dosage: UNK
     Route: 042
  2. CEFEPIME [Suspect]
     Active Substance: CEFEPIME HYDROCHLORIDE
     Indication: Gradenigo^s syndrome
     Dosage: UNK
     Route: 042
  3. METRONIDAZOLE [Suspect]
     Active Substance: METRONIDAZOLE
     Indication: Gradenigo^s syndrome
     Dosage: UNK
     Route: 042

REACTIONS (1)
  - Drug ineffective [Unknown]
